FAERS Safety Report 6258832-3 (Version None)
Quarter: 2009Q3

REPORT INFORMATION
  Report Type: 
  Country: None (occurrence: None)
  Receive Date: 20090702
  Receipt Date: 20090617
  Transmission Date: 20100115
  Serious: Yes (Death)
  Sender: FDA-Public Use
  Company Number: 2009AL002411 (1)

PATIENT
  Age: 76 Year
  Sex: Female

DRUGS (7)
  1. DIGOXIN [Suspect]
     Dosage: PO
     Route: 048
     Dates: start: 20040501
  2. PLAVIX [Concomitant]
  3. PREDNISONE TAB [Concomitant]
  4. VYTORIN [Concomitant]
  5. MICRO-K [Concomitant]
  6. CORDARONE [Concomitant]
  7. ASPIRIN [Concomitant]

REACTIONS (9)
  - CARDIAC ARREST [None]
  - CAROTID ARTERY ANEURYSM [None]
  - ECONOMIC PROBLEM [None]
  - ILL-DEFINED DISORDER [None]
  - INJURY [None]
  - LOSS OF CONSCIOUSNESS [None]
  - RENAL FAILURE [None]
  - RENAL FAILURE ACUTE [None]
  - THERAPEUTIC AGENT TOXICITY [None]
